FAERS Safety Report 7464160-0 (Version None)
Quarter: 2011Q2

REPORT INFORMATION
  Report Type: 
  Country: None (occurrence: None)
  Receive Date: 20110506
  Receipt Date: 20110429
  Transmission Date: 20111010
  Serious: Yes (Hospitalization)
  Sender: FDA-Public Use
  Company Number: CO-GENENTECH-317974

PATIENT
  Sex: Female

DRUGS (1)
  1. RITUXAN [Suspect]
     Indication: SJOGREN'S SYNDROME
     Dosage: 1000 MG, Q15D
     Route: 042
     Dates: start: 20080328, end: 20110201

REACTIONS (1)
  - CHOLECYSTITIS [None]
